FAERS Safety Report 5028445-X (Version None)
Quarter: 2006Q2

REPORT INFORMATION
  Report Type: 
  Country: None (occurrence: None)
  Receive Date: 20060617
  Receipt Date: 20060613
  Transmission Date: 20061013
  Serious: Yes (Congenital Anomaly)
  Sender: FDA-Public Use
  Company Number: US-GLAXOSMITHKLINE-A0609007A

PATIENT

DRUGS (4)
  1. LAMOTRIGINE [Suspect]
     Indication: BIPOLAR DISORDER
     Dates: start: 20060101
  2. MARIJUANA [Concomitant]
  3. ORTHO TRI-CYCLEN [Concomitant]
  4. ABILIFY [Concomitant]

REACTIONS (4)
  - ARNOLD-CHIARI MALFORMATION [None]
  - BRAIN MALFORMATION [None]
  - HYDROCEPHALUS [None]
  - SPINA BIFIDA [None]
